FAERS Safety Report 7829911-1 (Version None)
Quarter: 2011Q4

REPORT INFORMATION
  Report Type: 
  Country: None (occurrence: None)
  Receive Date: 20111021
  Receipt Date: 20110927
  Transmission Date: 20120403
  Serious: Yes (Other)
  Sender: FDA-Public Use
  Company Number: US-BAYER-2011-093491

PATIENT
  Age: 64 Year
  Sex: Female
  Weight: 79.365 kg

DRUGS (4)
  1. MULTI-VITAMIN [Concomitant]
  2. ASPIRIN [Suspect]
     Indication: ISCHAEMIC HEART DISEASE PROPHYLAXIS
     Dosage: 81 MG, QD, BOTTLE COUNT 365/400CT
     Route: 048
     Dates: start: 20110701
  3. CALCIUM CARBONATE [Concomitant]
  4. BREWERS YEAST [Concomitant]

REACTIONS (2)
  - FAECALOMA [None]
  - CONSTIPATION [None]
